FAERS Safety Report 5176828-X (Version None)
Quarter: 2006Q4

REPORT INFORMATION
  Report Type: 
  Country: None (occurrence: None)
  Receive Date: 20061218
  Receipt Date: 20061207
  Transmission Date: 20070319
  Serious: Yes (Death)
  Sender: FDA-Public Use
  Company Number: SE-JNJFOC-20061202753

PATIENT
  Age: 80 Year
  Sex: Female

DRUGS (2)
  1. REMINYL [Suspect]
     Indication: SENILE DEMENTIA
     Route: 048
  2. TENORMIN [Concomitant]

REACTIONS (1)
  - DUODENAL ULCER PERFORATION [None]
